FAERS Safety Report 7305909-7 (Version None)
Quarter: 2011Q1

REPORT INFORMATION
  Report Type: 
  Country: None (occurrence: None)
  Receive Date: 20110222
  Receipt Date: 20110210
  Transmission Date: 20110831
  Serious: Yes (Other)
  Sender: FDA-Public Use
  Company Number: US-PFIZER INC-2010127534

PATIENT
  Age: 33 Year
  Sex: Female

DRUGS (13)
  1. NEURONTIN [Interacting]
     Indication: NERVE INJURY
  2. RANITIDINE [Concomitant]
     Dosage: UNK
  3. IMITREX [Concomitant]
     Indication: MIGRAINE
     Dosage: UNK
  4. VISTARIL [Concomitant]
     Indication: ANXIETY
     Dosage: 25 MG, 3X/DAY
  5. PROTONIX [Concomitant]
     Dosage: UNK
  6. NEURONTIN [Interacting]
     Indication: MIGRAINE
     Dosage: 600 MG, 3X/DAILY
     Dates: end: 20100901
  7. PROVENTIL /OLD FORM/ [Concomitant]
     Dosage: UNK
  8. TRANXENE [Concomitant]
     Dosage: 35.5 MG, DAILY
  9. CELEXA [Concomitant]
     Dosage: 60 MG, UNK
  10. CELEXA [Concomitant]
     Dosage: 40 MG, UNK
  11. LEVOTHYROXINE [Concomitant]
     Dosage: UNK
  12. ADVAIR [Concomitant]
     Dosage: UNK
  13. PRISTIQ [Suspect]
     Indication: GENERALISED ANXIETY DISORDER
     Dosage: 50 MG, 1X/DAY
     Dates: start: 20100922

REACTIONS (12)
  - STRUCK BY LIGHTNING [None]
  - MUSCULOSKELETAL STIFFNESS [None]
  - COGNITIVE DISORDER [None]
  - PANIC DISORDER [None]
  - PAIN IN EXTREMITY [None]
  - JOINT STIFFNESS [None]
  - POST-TRAUMATIC STRESS DISORDER [None]
  - GENERALISED ANXIETY DISORDER [None]
  - ARTHRALGIA [None]
  - CANDIDIASIS [None]
  - DRUG INTERACTION [None]
  - GLOSSODYNIA [None]
